FAERS Safety Report 20496482 (Version 1)
Quarter: 2022Q1

REPORT INFORMATION
  Report Type: Report from Study
  Country: US (occurrence: US)
  Receive Date: 20220221
  Receipt Date: 20220221
  Transmission Date: 20220424
  Serious: Yes (Other)
  Sender: FDA-Public Use
  Company Number: US-TAKEDA-2021TUS043993

PATIENT
  Age: 46 Year
  Sex: Female

DRUGS (20)
  1. TEDUGLUTIDE [Suspect]
     Active Substance: TEDUGLUTIDE
     Indication: Short-bowel syndrome
     Dosage: 4.32 MILLIGRAM, QD
     Route: 065
     Dates: start: 20181128, end: 201905
  2. TEDUGLUTIDE [Suspect]
     Active Substance: TEDUGLUTIDE
     Indication: Short-bowel syndrome
     Dosage: 4.32 MILLIGRAM, QD
     Route: 065
     Dates: start: 20181128, end: 201905
  3. TEDUGLUTIDE [Suspect]
     Active Substance: TEDUGLUTIDE
     Indication: Short-bowel syndrome
     Dosage: 4.32 MILLIGRAM, QD
     Route: 065
     Dates: start: 20181128, end: 201905
  4. TEDUGLUTIDE [Suspect]
     Active Substance: TEDUGLUTIDE
     Indication: Short-bowel syndrome
     Dosage: 4.32 MILLIGRAM, QD
     Route: 065
     Dates: start: 20181128, end: 201905
  5. TEDUGLUTIDE [Suspect]
     Active Substance: TEDUGLUTIDE
     Dosage: 4.38 MILLIGRAM, QD
     Route: 065
     Dates: start: 201905, end: 202006
  6. TEDUGLUTIDE [Suspect]
     Active Substance: TEDUGLUTIDE
     Dosage: 4.38 MILLIGRAM, QD
     Route: 065
     Dates: start: 201905, end: 202006
  7. TEDUGLUTIDE [Suspect]
     Active Substance: TEDUGLUTIDE
     Dosage: 4.38 MILLIGRAM, QD
     Route: 065
     Dates: start: 201905, end: 202006
  8. TEDUGLUTIDE [Suspect]
     Active Substance: TEDUGLUTIDE
     Dosage: 4.38 MILLIGRAM, QD
     Route: 065
     Dates: start: 201905, end: 202006
  9. TEDUGLUTIDE [Suspect]
     Active Substance: TEDUGLUTIDE
     Dosage: 4.57 MILLIGRAM, QD
     Route: 065
     Dates: start: 202006, end: 202103
  10. TEDUGLUTIDE [Suspect]
     Active Substance: TEDUGLUTIDE
     Dosage: 4.57 MILLIGRAM, QD
     Route: 065
     Dates: start: 202006, end: 202103
  11. TEDUGLUTIDE [Suspect]
     Active Substance: TEDUGLUTIDE
     Dosage: 4.57 MILLIGRAM, QD
     Route: 065
     Dates: start: 202006, end: 202103
  12. TEDUGLUTIDE [Suspect]
     Active Substance: TEDUGLUTIDE
     Dosage: 4.57 MILLIGRAM, QD
     Route: 065
     Dates: start: 202006, end: 202103
  13. TEDUGLUTIDE [Suspect]
     Active Substance: TEDUGLUTIDE
     Dosage: 4.60 MILLIGRAM, 4/WEEK
     Route: 065
     Dates: start: 202103, end: 20210920
  14. TEDUGLUTIDE [Suspect]
     Active Substance: TEDUGLUTIDE
     Dosage: 4.60 MILLIGRAM, 4/WEEK
     Route: 065
     Dates: start: 202103, end: 20210920
  15. TEDUGLUTIDE [Suspect]
     Active Substance: TEDUGLUTIDE
     Dosage: 4.60 MILLIGRAM, 4/WEEK
     Route: 065
     Dates: start: 202103, end: 20210920
  16. TEDUGLUTIDE [Suspect]
     Active Substance: TEDUGLUTIDE
     Dosage: 4.60 MILLIGRAM, 4/WEEK
     Route: 065
     Dates: start: 202103, end: 20210920
  17. ENOXAPARIN [Concomitant]
     Active Substance: ENOXAPARIN
     Indication: Vascular device infection
     Dosage: 100 MILLIGRAM, Q12H
     Route: 058
     Dates: start: 20200707
  18. FLUCONAZOLE [Concomitant]
     Active Substance: FLUCONAZOLE
     Indication: Vascular device infection
     Dosage: 400 MILLIGRAM
     Route: 065
     Dates: start: 20200707, end: 20200721
  19. BACTRIM [Concomitant]
     Active Substance: SULFAMETHOXAZOLE\TRIMETHOPRIM
     Indication: Vascular device infection
     Dosage: 1 UNK, BID
     Route: 065
     Dates: start: 20200707, end: 20200714
  20. MICAFUNGIN [Concomitant]
     Active Substance: MICAFUNGIN
     Indication: Vascular device infection
     Dosage: 9999999.99 UNK, SINGLE
     Route: 065
     Dates: start: 20200707, end: 20200707

REACTIONS (2)
  - Vascular device infection [Recovered/Resolved]
  - Bacterial infection [Recovered/Resolved]

NARRATIVE: CASE EVENT DATE: 20200706
